FAERS Safety Report 16028755 (Version 1)
Quarter: 2019Q1

REPORT INFORMATION
  Report Type: Spontaneous
  Country: US (occurrence: US)
  Receive Date: 20190204
  Receipt Date: 20190204
  Transmission Date: 20190418
  Serious: No
  Sender: FDA-Public Use
  Company Number: None

PATIENT
  Age: 13 Year
  Sex: Male

DRUGS (1)
  1. OMNITROPE [Suspect]
     Active Substance: SOMATROPIN
     Dates: start: 20181219

REACTIONS (5)
  - Peripheral swelling [None]
  - Joint swelling [None]
  - Headache [None]
  - Visual impairment [None]
  - Fatigue [None]

NARRATIVE: CASE EVENT DATE: 20190204
